FAERS Safety Report 8429427-8 (Version None)
Quarter: 2012Q2

REPORT INFORMATION
  Report Type: 
  Country: None (occurrence: None)
  Receive Date: 20120612
  Receipt Date: 20120607
  Transmission Date: 20120825
  Serious: No
  Sender: FDA-Public Use
  Company Number: US-BAYER-2012-057552

PATIENT
  Age: 79 Year
  Sex: Male
  Weight: 89 kg

DRUGS (3)
  1. ALEVE (CAPLET) [Suspect]
     Dosage: 1 DF, BID
     Route: 048
     Dates: start: 20120101, end: 20120101
  2. ASPIRIN [Concomitant]
     Dosage: 81 MG, QD
  3. ASMANEX TWISTHALER [Concomitant]

REACTIONS (1)
  - NO ADVERSE EVENT [None]
